FAERS Safety Report 16466817 (Version 1)
Quarter: 2019Q2

REPORT INFORMATION
  Report Type: Spontaneous
  Country: CH (occurrence: CH)
  Receive Date: 20190623
  Receipt Date: 20190623
  Transmission Date: 20190711
  Serious: Yes (Other)
  Sender: FDA-Public Use
  Company Number: CH-BEH-2019100871

PATIENT
  Age: 28 Year
  Sex: Female

DRUGS (7)
  1. RHOPHYLAC [Suspect]
     Active Substance: HUMAN RHO(D) IMMUNE GLOBULIN
     Indication: PROPHYLAXIS AGAINST RH ISOIMMUNISATION
     Dosage: 300 IU, UNK
     Route: 065
     Dates: start: 20160701
  2. RHOPHYLAC [Suspect]
     Active Substance: HUMAN RHO(D) IMMUNE GLOBULIN
     Dosage: 300 IU, UNK
     Route: 065
     Dates: start: 20160929
  3. ESOMEP                             /00661201/ [Concomitant]
     Indication: GASTRITIS PROPHYLAXIS
  4. RHOPHYLAC [Suspect]
     Active Substance: HUMAN RHO(D) IMMUNE GLOBULIN
     Dosage: 300 IU, UNK
     Route: 065
     Dates: start: 20160929
  5. ELEVIT                             /01730301/ [Concomitant]
     Active Substance: FOLIC ACID\IRON\MINERALS\VITAMINS
  6. ESOMEP                             /00661201/ [Concomitant]
     Indication: GASTRITIS PROPHYLAXIS
  7. RHOPHYLAC [Suspect]
     Active Substance: HUMAN RHO(D) IMMUNE GLOBULIN
     Indication: PROPHYLAXIS AGAINST RH ISOIMMUNISATION
     Dosage: 300 IU, UNK
     Route: 065
     Dates: start: 20160701

REACTIONS (2)
  - Drug ineffective [Unknown]
  - Exposure during pregnancy [Unknown]
